FAERS Safety Report 9062631 (Version 1)
Quarter: 2013Q1

REPORT INFORMATION
  Report Type: Spontaneous
  Country: DE (occurrence: DE)
  Receive Date: 20130213
  Receipt Date: 20130213
  Transmission Date: 20140127
  Serious: Yes (Other)
  Sender: FDA-Public Use
  Company Number: DE-ROCHE-1187465

PATIENT
  Age: 65 Year
  Sex: Female

DRUGS (1)
  1. MABTHERA [Suspect]
     Indication: CHRONIC LYMPHOCYTIC LEUKAEMIA
     Dosage: SEVERAL CYCLES
     Route: 065

REACTIONS (1)
  - Progressive multifocal leukoencephalopathy [Unknown]
